FAERS Safety Report 5760918-4 (Version None)
Quarter: 2008Q2

REPORT INFORMATION
  Report Type: 
  Country: None (occurrence: None)
  Receive Date: 20080606
  Receipt Date: 20070831
  Transmission Date: 20081010
  Serious: No
  Sender: FDA-Public Use
  Company Number: US-ASTRAZENECA-2007UW20713

PATIENT
  Age: 72 Year
  Sex: Female
  Weight: 75.7 kg

DRUGS (5)
  1. PRILOSEC [Suspect]
     Indication: GASTROOESOPHAGEAL REFLUX DISEASE
     Route: 048
     Dates: start: 20070417, end: 20070810
  2. PRILOSEC [Suspect]
     Indication: GASTRITIS
     Route: 048
     Dates: start: 20070417, end: 20070810
  3. LEVOTHYROXINE SODIUM [Concomitant]
  4. LEVOTHYROXINE SODIUM [Concomitant]
  5. PREVACID [Concomitant]
     Dates: start: 20070812

REACTIONS (3)
  - ALOPECIA [None]
  - DRUG INEFFECTIVE [None]
  - HYPOTHYROIDISM [None]
